FAERS Safety Report 10328365 (Version 1)
Quarter: 2014Q3

REPORT INFORMATION
  Report Type: Spontaneous
  Country: US (occurrence: None)
  Receive Date: 20140717
  Receipt Date: 20140717
  Transmission Date: 20150326
  Serious: Yes (Hospitalization)
  Sender: FDA-Public Use
  Company Number: None

PATIENT
  Age: 66 Year
  Sex: Male

DRUGS (1)
  1. IPILIMUMAB [Suspect]
     Active Substance: IPILIMUMAB
     Indication: NEOPLASM MALIGNANT
     Route: 042
     Dates: start: 20121126, end: 20130128

REACTIONS (11)
  - Headache [None]
  - Nausea [None]
  - Rash [None]
  - Dyspnoea exertional [None]
  - Feeling abnormal [None]
  - Temperature intolerance [None]
  - Hypophagia [None]
  - Angina pectoris [None]
  - Decreased appetite [None]
  - Vomiting [None]
  - Fatigue [None]

NARRATIVE: CASE EVENT DATE: 20130210
